FAERS Safety Report 15836273 (Version 4)
Quarter: 2019Q1

REPORT INFORMATION
  Report Type: Report from Study
  Country: None (occurrence: NL)
  Receive Date: 20190117
  Receipt Date: 20190314
  Transmission Date: 20190417
  Serious: Yes (Hospitalization, Other)
  Sender: FDA-Public Use
  Company Number: NL-ABBVIE-19K-114-2627732-00

PATIENT
  Age: 31 Year
  Sex: Male

DRUGS (1)
  1. HUMIRA [Suspect]
     Active Substance: ADALIMUMAB
     Indication: CROHN^S DISEASE
     Route: 058
     Dates: start: 20181015, end: 201902

REACTIONS (11)
  - C-reactive protein increased [Unknown]
  - Tonsillitis [Recovered/Resolved]
  - Post procedural complication [Recovering/Resolving]
  - Inflammatory marker increased [Recovering/Resolving]
  - Wound [Recovering/Resolving]
  - Diarrhoea [Recovering/Resolving]
  - Inflammatory marker increased [Recovered/Resolved]
  - Haematochezia [Recovering/Resolving]
  - Pharyngeal inflammation [Recovering/Resolving]
  - Vomiting [Recovering/Resolving]
  - Pyrexia [Recovered/Resolved]

NARRATIVE: CASE EVENT DATE: 20181218
